FAERS Safety Report 13031113 (Version 2)
Quarter: 2017Q1

REPORT INFORMATION
  Report Type: Report from Study
  Country: FR (occurrence: FR)
  Receive Date: 20161215
  Receipt Date: 20170117
  Transmission Date: 20170428
  Serious: Yes (Death, Life-Threatening, Hospitalization)
  Sender: FDA-Public Use
  Company Number: FR-ELI_LILLY_AND_COMPANY-FR201612001754

PATIENT
  Age: 69 Year
  Sex: Male
  Weight: 102 kg

DRUGS (7)
  1. GEMCITABINE HYDROCHLORIDE. [Suspect]
     Active Substance: GEMCITABINE HYDROCHLORIDE
     Indication: PRODUCT USED FOR UNKNOWN INDICATION
     Dosage: UNK UNK, CYCLICAL
     Route: 065
     Dates: start: 20151223, end: 201603
  2. GEMCITABINE HYDROCHLORIDE. [Suspect]
     Active Substance: GEMCITABINE HYDROCHLORIDE
     Dosage: UNK UNK, CYCLICAL (MAINTENANCE THERAPY, GEMZAR ALONE)
     Route: 065
     Dates: end: 20161018
  3. PEMETREXED [Suspect]
     Active Substance: PEMETREXED
     Indication: LUNG ADENOCARCINOMA
     Dosage: 875 MG PER INJECTION, CYCLICAL
     Route: 065
     Dates: start: 20161115, end: 20161115
  4. FOLIC ACID. [Concomitant]
     Active Substance: FOLIC ACID
     Dosage: UNK, CYCLICAL
  5. CISPLATIN. [Suspect]
     Active Substance: CISPLATIN
     Indication: PRODUCT USED FOR UNKNOWN INDICATION
     Dosage: UNK UNK, CYCLICAL
     Route: 065
     Dates: start: 20151223, end: 201603
  6. DEXAMETHASONE. [Concomitant]
     Active Substance: DEXAMETHASONE
     Dosage: 8 MG, CYCLICAL
  7. CYANOCOBALAMIN. [Concomitant]
     Active Substance: CYANOCOBALAMIN
     Dosage: UNK, OTHER
     Route: 030

REACTIONS (4)
  - Generalised oedema [Fatal]
  - Bone marrow failure [Fatal]
  - Renal failure [Fatal]
  - Respiratory distress [Fatal]

NARRATIVE: CASE EVENT DATE: 20161121
